FAERS Safety Report 23276729 (Version 2)
Quarter: 2023Q4

REPORT INFORMATION
  Report Type: Spontaneous
  Country: CN (occurrence: CN)
  Receive Date: 20231208
  Receipt Date: 20231215
  Transmission Date: 20240109
  Serious: Yes (Life-Threatening, Hospitalization, Other)
  Sender: FDA-Public Use
  Company Number: CN-MLMSERVICE-20231201-4706764-1

PATIENT
  Age: 68 Year
  Sex: Male

DRUGS (12)
  1. METHYLPREDNISOLONE SODIUM SUCCINATE [Suspect]
     Active Substance: METHYLPREDNISOLONE SODIUM SUCCINATE
     Indication: Glomerulonephritis
     Dosage: 0.25 G, 1X/DAY
     Dates: start: 20220701, end: 20220703
  2. METHYLPREDNISOLONE SODIUM SUCCINATE [Suspect]
     Active Substance: METHYLPREDNISOLONE SODIUM SUCCINATE
     Indication: Pulmonary alveolar haemorrhage
     Dosage: 40 MG, 1X/DAY
     Route: 042
     Dates: start: 20220701, end: 202207
  3. METHYLPREDNISOLONE SODIUM SUCCINATE [Suspect]
     Active Substance: METHYLPREDNISOLONE SODIUM SUCCINATE
     Indication: Pneumonia bacterial
     Dosage: 40 MG, 1X/DAY
     Route: 042
     Dates: start: 20220702, end: 202207
  4. PREDNISONE [Suspect]
     Active Substance: PREDNISONE
     Indication: Glomerulonephritis
     Dosage: 40 MG, 1X/DAY
     Route: 048
     Dates: start: 20220702, end: 202207
  5. PREDNISONE [Suspect]
     Active Substance: PREDNISONE
     Indication: Pulmonary alveolar haemorrhage
     Dosage: 36 MG, 1X/DAY
     Route: 048
     Dates: start: 20220808, end: 202208
  6. PREDNISONE [Suspect]
     Active Substance: PREDNISONE
     Indication: Pneumonia bacterial
     Dosage: 32 MG, 36 MG, 1X/DAY (DECREASED BY 4 MG EVERY 2 WEEKS)
     Route: 048
     Dates: start: 202208
  7. PREDNISONE [Suspect]
     Active Substance: PREDNISONE
     Dosage: 16 MG, 1X/DAY
     Route: 048
     Dates: start: 20220802, end: 202208
  8. PREDNISONE [Suspect]
     Active Substance: PREDNISONE
     Dosage: REDUCED BY 4 MG EVERY WEEKS
     Route: 048
     Dates: start: 2022
  9. PREDNISONE [Suspect]
     Active Substance: PREDNISONE
     Dosage: 8 MG, 1X/DAY
     Dates: start: 20220803, end: 202208
  10. PIPERACILLIN SODIUM\TAZOBACTAM SODIUM [Concomitant]
     Active Substance: PIPERACILLIN SODIUM\TAZOBACTAM SODIUM
     Indication: Antibiotic therapy
     Dosage: UNK
     Dates: start: 20220708
  11. SULFAMETHOXAZOLE [Concomitant]
     Active Substance: SULFAMETHOXAZOLE
     Indication: Antifungal prophylaxis
     Dosage: 0.96 G, 2X/DAY
     Dates: start: 202207
  12. CYCLOPHOSPHAMIDE [Concomitant]
     Active Substance: CYCLOPHOSPHAMIDE
     Indication: Immunosuppressant drug therapy
     Dosage: 0.6 G, 1X/DAY
     Route: 042
     Dates: start: 20220701, end: 202207

REACTIONS (4)
  - Pneumonia pseudomonal [Unknown]
  - Pneumocystis jirovecii pneumonia [Unknown]
  - Pneumonia legionella [Unknown]
  - Pulmonary tuberculosis [Unknown]

NARRATIVE: CASE EVENT DATE: 20220101
